FAERS Safety Report 7388123-9 (Version None)
Quarter: 2011Q1

REPORT INFORMATION
  Report Type: 
  Country: None (occurrence: None)
  Receive Date: 20110324
  Receipt Date: 20110315
  Transmission Date: 20110831
  Serious: Yes (Hospitalization)
  Sender: FDA-Public Use
  Company Number: 2011MA002448

PATIENT
  Age: 46 Year
  Sex: Female

DRUGS (4)
  1. LOXAPINE [Concomitant]
  2. CHLORPROMAZINE HCL [Suspect]
     Indication: PSYCHOTIC DISORDER
     Dosage: PO
     Route: 048
  3. TROPATEPINE [Concomitant]
  4. TRIHEXYPHENIDYL [Concomitant]

REACTIONS (7)
  - HYPOVENTILATION [None]
  - GASTROINTESTINAL HYPOMOTILITY [None]
  - RENAL FAILURE ACUTE [None]
  - RESPIRATORY RATE INCREASED [None]
  - ABDOMINAL COMPARTMENT SYNDROME [None]
  - SHOCK [None]
  - INTESTINAL INFARCTION [None]
